FAERS Safety Report 5737718-4 (Version None)
Quarter: 2008Q2

REPORT INFORMATION
  Report Type: 
  Country: None (occurrence: None)
  Receive Date: 20080514
  Receipt Date: 20080505
  Transmission Date: 20081010
  Serious: Yes (Congenital Anomaly)
  Sender: FDA-Public Use
  Company Number: A0695884A

PATIENT
  Sex: Male

DRUGS (6)
  1. PAXIL [Suspect]
     Indication: DEPRESSION
     Dosage: 20MG PER DAY
     Dates: start: 20030301, end: 20031001
  2. VITAMIN TAB [Concomitant]
  3. UNSPECIFIED MEDICATION [Concomitant]
  4. MACROBID [Concomitant]
     Indication: URINARY TRACT INFECTION
  5. ALBUTEROL [Concomitant]
     Indication: ASTHMA
  6. PROMETHAZINE [Concomitant]

REACTIONS (4)
  - ATRIAL SEPTAL DEFECT [None]
  - CARDIAC MURMUR [None]
  - DRUG EXPOSURE DURING PREGNANCY [None]
  - VENTRICULAR SEPTAL DEFECT [None]
